FAERS Safety Report 7506439-X (Version None)
Quarter: 2011Q2

REPORT INFORMATION
  Report Type: 
  Country: None (occurrence: None)
  Receive Date: 20110526
  Receipt Date: 20110513
  Transmission Date: 20111010
  Serious: Yes (Hospitalization, Other)
  Sender: FDA-Public Use
  Company Number: US-ACTELION-A-US2011-48180

PATIENT

DRUGS (12)
  1. EPOPROSTENOL SODIUM [Suspect]
     Indication: PORTOPULMONARY HYPERTENSION
     Dosage: 12 NG/KG, PER MIN
     Route: 042
     Dates: start: 20110418
  2. LACTULOSE [Concomitant]
  3. SPIRONOLACTONE [Concomitant]
  4. EPOPROSTENOL SODIUM [Suspect]
     Dosage: 8 NG/KG, PER MIN
     Route: 042
     Dates: start: 20110329, end: 20110417
  5. HYDROMORPHONE HCL [Concomitant]
  6. CITALOPRAM HYDROBROMIDE [Concomitant]
  7. ALBUTEROL SULFATE AUTOHALER [Concomitant]
     Indication: PORTOPULMONARY HYPERTENSION
  8. RIFAXIMIN [Concomitant]
  9. EPOPROSTENOL SODIUM [Suspect]
     Dosage: UNK
     Route: 042
     Dates: start: 20110301, end: 20110328
  10. METOPROLOL TARTRATE [Concomitant]
  11. OMEPRAZOLE [Concomitant]
  12. PRAMIPEXOLE DIHYDROCHLORIDE [Concomitant]

REACTIONS (13)
  - HYPONATRAEMIA [None]
  - OEDEMA PERIPHERAL [None]
  - DEVICE COMPONENT ISSUE [None]
  - RIGHT VENTRICULAR FAILURE [None]
  - DIZZINESS [None]
  - ANGINA PECTORIS [None]
  - WEIGHT INCREASED [None]
  - FATIGUE [None]
  - HEADACHE [None]
  - CATHETER SITE ERYTHEMA [None]
  - FLUID RETENTION [None]
  - DYSPNOEA [None]
  - PAIN IN JAW [None]
